FAERS Safety Report 8825931 (Version 1)
Quarter: 2012Q4

REPORT INFORMATION
  Report Type: 
  Country: JP (occurrence: JP)
  Receive Date: 20121005
  Receipt Date: 20121005
  Transmission Date: 20130627
  Serious: Yes (Other)
  Sender: FDA-Public Use
  Company Number: JP-BAYER-2012-100877

PATIENT
  Age: 66 Year
  Sex: Male

DRUGS (4)
  1. DACARBAZINE [Suspect]
     Indication: MALIGNANT FIBROUS HISTIOCYTOMA
  2. PIRARUBICIN [Suspect]
     Indication: MALIGNANT FIBROUS HISTIOCYTOMA
  3. IFOSFAMIDE [Suspect]
     Indication: MALIGNANT FIBROUS HISTIOCYTOMA
  4. WARFARIN [Concomitant]
     Indication: ATRIAL FLUTTER

REACTIONS (2)
  - Pleural effusion [None]
  - Decreased appetite [None]
